FAERS Safety Report 21951574 (Version 1)
Quarter: 2023Q1

REPORT INFORMATION
  Report Type: Spontaneous
  Country: US (occurrence: US)
  Receive Date: 20230203
  Receipt Date: 20230203
  Transmission Date: 20230417
  Serious: No
  Sender: FDA-Public Use
  Company Number: US-NAPO PHARMACEUTICALS-2022US004589

PATIENT

DRUGS (1)
  1. MYTESI [Suspect]
     Active Substance: CROFELEMER
     Indication: Irritable bowel syndrome
     Dosage: 125 MG, BID
     Route: 048
     Dates: start: 20220521

REACTIONS (3)
  - Pharyngitis streptococcal [Unknown]
  - Oropharyngeal pain [Unknown]
  - Off label use [Unknown]
